FAERS Safety Report 11890934 (Version 1)
Quarter: 2016Q1

REPORT INFORMATION
  Report Type: Spontaneous
  Country: FR (occurrence: FR)
  Receive Date: 20160106
  Receipt Date: 20160106
  Transmission Date: 20160526
  Serious: Yes (Hospitalization)
  Sender: FDA-Public Use
  Company Number: FR-PFIZER INC-2015478720

PATIENT
  Age: 68 Year
  Sex: Female

DRUGS (12)
  1. INDAPAMIDE. [Suspect]
     Active Substance: INDAPAMIDE
     Dosage: 1 DF, 2X/DAY
     Route: 048
     Dates: end: 20150902
  2. METFORMIN [Concomitant]
     Active Substance: METFORMIN HYDROCHLORIDE
     Dosage: UNK
  3. LANTUS [Suspect]
     Active Substance: INSULIN GLARGINE
     Dosage: 15 IU, DAILY
     Route: 058
     Dates: end: 20150902
  4. ATARAX [Suspect]
     Active Substance: HYDROXYZINE\HYDROXYZINE HYDROCHLORIDE
     Dosage: 3 DF,DAILY
     Route: 048
     Dates: end: 20150902
  5. LEVOTHYROX [Concomitant]
     Active Substance: LEVOTHYROXINE
     Dosage: UNK
     Dates: end: 20150902
  6. MONO-TILDIEM [Concomitant]
     Active Substance: DILTIAZEM HYDROCHLORIDE
     Dosage: UNK
  7. RILMENIDINE [Concomitant]
     Active Substance: RILMENIDINE
     Dosage: UNK
  8. TAHOR [Concomitant]
     Active Substance: ATORVASTATIN CALCIUM
     Dosage: UNK
  9. TRIATEC [Suspect]
     Active Substance: RAMIPRIL
     Dosage: 10 MG, DAILY
     Route: 048
     Dates: end: 20150902
  10. KARDEGIC [Concomitant]
     Active Substance: ASPIRIN LYSINE
     Dosage: UNK
  11. IMOVANE [Concomitant]
     Active Substance: ZOPICLONE
     Dosage: UNK
  12. GLICLAZIDE [Suspect]
     Active Substance: GLICLAZIDE
     Dosage: 60 MG, DAILY
     Route: 048
     Dates: end: 20150902

REACTIONS (3)
  - Loss of consciousness [Recovered/Resolved]
  - Fall [Recovered/Resolved]
  - Orthostatic hypotension [Recovered/Resolved]

NARRATIVE: CASE EVENT DATE: 20150901
